FAERS Safety Report 6255598-8 (Version None)
Quarter: 2009Q4

REPORT INFORMATION
  Report Type: 
  Country: None (occurrence: None)
  Receive Date: 20090701
  Receipt Date: 20090618
  Transmission Date: 20100525
  Serious: Yes (Death, Hospitalization, Other)
  Sender: FDA-Public Use
  Company Number: 237135J08USA

PATIENT
  Age: 44 Year
  Sex: Female

DRUGS (3)
  1. REBIF [Suspect]
     Indication: MULTIPLE SCLEROSIS
     Dosage: 44 MCG, 3 IN 1 WEEKS, SUBCUTANEOUS
     Route: 058
     Dates: start: 20061212, end: 20090605
  2. CHEMOTHERAPY (OTHER CHEMOTHERAPEUTICS) [Suspect]
     Indication: COLON CANCER
     Dates: start: 20080716, end: 20090501
  3. MAXZIDE [Concomitant]

REACTIONS (16)
  - BLOOD PRESSURE DECREASED [None]
  - CHEST PAIN [None]
  - COLON CANCER STAGE IV [None]
  - DECREASED APPETITE [None]
  - DEHYDRATION [None]
  - DIALYSIS [None]
  - GASTROOESOPHAGEAL REFLUX DISEASE [None]
  - INSOMNIA [None]
  - MALAISE [None]
  - NAUSEA [None]
  - PAIN [None]
  - RENAL FAILURE ACUTE [None]
  - URINARY TRACT INFECTION [None]
  - UTERINE LEIOMYOMA [None]
  - VOMITING [None]
  - WOUND DEHISCENCE [None]
